FAERS Safety Report 8495875-3 (Version None)
Quarter: 2012Q3

REPORT INFORMATION
  Report Type: 
  Country: None (occurrence: None)
  Receive Date: 20120709
  Receipt Date: 20120629
  Transmission Date: 20120928
  Serious: No
  Sender: FDA-Public Use
  Company Number: US-PFIZER INC-2012158084

PATIENT
  Sex: Female

DRUGS (4)
  1. AMPRENAVIR [Suspect]
     Dosage: UNK
  2. NARATRIPTAN [Suspect]
     Dosage: UNK
  3. SUMATRIPTAN SUCCINATE [Suspect]
     Dosage: UNK
  4. PABA TAB [Suspect]
     Dosage: UNK

REACTIONS (1)
  - DRUG HYPERSENSITIVITY [None]
